FAERS Safety Report 9861348 (Version 1)
Quarter: 2014Q1

REPORT INFORMATION
  Report Type: Spontaneous
  Country: US (occurrence: None)
  Receive Date: 20140131
  Receipt Date: 20140131
  Transmission Date: 20141002
  Serious: Yes (Other)
  Sender: FDA-Public Use
  Company Number: None

PATIENT
  Age: 45 Year
  Sex: Female
  Weight: 67.59 kg

DRUGS (5)
  1. 5-FLUOROURACIL [Suspect]
     Dosage: INJECTED INTO SKIN
     Dates: start: 20120829, end: 20120829
  2. LEXAPRO [Concomitant]
  3. WELLBUTRIN [Concomitant]
  4. KLONIPIN [Concomitant]
  5. ESTRADIOL [Concomitant]

REACTIONS (2)
  - Atrophy [None]
  - Injection site exfoliation [None]
